FAERS Safety Report 23742770 (Version 1)
Quarter: 2024Q2

REPORT INFORMATION
  Report Type: Spontaneous
  Country: US (occurrence: None)
  Receive Date: 20240415
  Receipt Date: 20240415
  Transmission Date: 20240716
  Serious: Yes (Life-Threatening, Hospitalization, Other)
  Sender: FDA-Public Use
  Company Number: 2024A087381

PATIENT
  Age: 916 Month
  Sex: Female

DRUGS (1)
  1. BREZTRI [Suspect]
     Active Substance: BUDESONIDE\FORMOTEROL\GLYCOPYRROLATE
     Route: 055
     Dates: start: 202401, end: 202403

REACTIONS (8)
  - Toxicity to various agents [Unknown]
  - Pneumonia [Recovering/Resolving]
  - Intraocular pressure increased [Unknown]
  - Visual impairment [Unknown]
  - Heart rate increased [Unknown]
  - Blood glucose increased [Unknown]
  - Upper respiratory tract infection [Unknown]
  - Drug ineffective [Unknown]

NARRATIVE: CASE EVENT DATE: 20240301
